FAERS Safety Report 9524441 (Version 1)
Quarter: 2013Q3

REPORT INFORMATION
  Report Type: Spontaneous
  Country: US (occurrence: US)
  Receive Date: 20130916
  Receipt Date: 20130916
  Transmission Date: 20140515
  Serious: No
  Sender: FDA-Public Use
  Company Number: US-PFIZER INC-2013265471

PATIENT
  Age: 75 Year
  Sex: Male
  Weight: 81.63 kg

DRUGS (2)
  1. LYRICA [Suspect]
     Indication: NEUROPATHY PERIPHERAL
     Dosage: 6 CAPSULES A DAY
     Route: 048
     Dates: start: 2009
  2. LYRICA [Suspect]
     Dosage: 5 CAPSULES A DAY
     Route: 048

REACTIONS (1)
  - Blood urine present [Unknown]
